FAERS Safety Report 22344481 (Version 1)
Quarter: 2023Q2

REPORT INFORMATION
  Report Type: Spontaneous
  Country: US (occurrence: US)
  Receive Date: 20230519
  Receipt Date: 20230519
  Transmission Date: 20230721
  Serious: No
  Sender: FDA-Public Use
  Company Number: US-AMNEAL PHARMACEUTICALS-2022-AMRX-02009

PATIENT
  Sex: Male
  Weight: 74.84 kg

DRUGS (2)
  1. BUSPIRONE HYDROCHLORIDE [Suspect]
     Active Substance: BUSPIRONE HYDROCHLORIDE
     Indication: Mania
     Dosage: 10 MILLIGRAM, 3 /DAY
     Route: 048
     Dates: start: 202202
  2. LAMOTRIGINE [Suspect]
     Active Substance: LAMOTRIGINE
     Indication: Mania
     Dosage: 200 MILLIGRAM, DAILY
     Route: 065
     Dates: start: 2016

REACTIONS (5)
  - COVID-19 [Unknown]
  - Anxiety [Not Recovered/Not Resolved]
  - Euphoric mood [Unknown]
  - Restless legs syndrome [Recovering/Resolving]
  - Insomnia [Unknown]

NARRATIVE: CASE EVENT DATE: 20220101
